FAERS Safety Report 19115722 (Version 2)
Quarter: 2023Q2

REPORT INFORMATION
  Report Type: Spontaneous
  Country: IT (occurrence: IT)
  Receive Date: 20210409
  Receipt Date: 20230622
  Transmission Date: 20230721
  Serious: Yes (Other)
  Sender: FDA-Public Use
  Company Number: IT-MLMSERVICE-20210325-2796768-1

PATIENT
  Age: 70 Year
  Sex: Male

DRUGS (3)
  1. CARBOPLATIN [Suspect]
     Active Substance: CARBOPLATIN
     Indication: Small cell lung cancer
     Dosage: UNK, CYCLIC (AUC) 3.5 (TOTAL DOSE 300 MG)
     Dates: start: 2019
  2. CARBOPLATIN [Suspect]
     Active Substance: CARBOPLATIN
     Indication: Metastases to liver
     Dosage: UNK, CYCLIC INCREASING DOSES (MAXIMUM DOSE AUC 4.5)
  3. CARBOPLATIN [Suspect]
     Active Substance: CARBOPLATIN
     Indication: Metastases to lymph nodes

REACTIONS (2)
  - Bone marrow failure [Unknown]
  - Myelofibrosis [Unknown]

NARRATIVE: CASE EVENT DATE: 20190101
